FAERS Safety Report 13032805 (Version 3)
Quarter: 2017Q1

REPORT INFORMATION
  Report Type: Report from Study
  Country: US (occurrence: US)
  Receive Date: 20161215
  Receipt Date: 20170329
  Transmission Date: 20170428
  Serious: Yes (Hospitalization, Other)
  Sender: FDA-Public Use
  Company Number: US-ACTELION-A-NJ2016-133225

PATIENT
  Age: 60 Year
  Sex: Female
  Weight: 92.97 kg

DRUGS (7)
  1. LISINOPRIL. [Suspect]
     Active Substance: LISINOPRIL
     Indication: BLOOD PRESSURE MEASUREMENT
     Dosage: UNK
     Route: 065
     Dates: start: 20170313
  2. METOPROLOL SUCCINATE. [Suspect]
     Active Substance: METOPROLOL SUCCINATE
     Dosage: 50 MG, BID
     Route: 065
  3. OPSUMIT [Suspect]
     Active Substance: MACITENTAN
     Indication: PULMONARY ARTERIAL HYPERTENSION
     Dosage: 10 MG, QD
     Route: 048
     Dates: start: 20150304
  4. AMLODIPINE [Suspect]
     Active Substance: AMLODIPINE BESYLATE
     Indication: BLOOD PRESSURE MEASUREMENT
     Dosage: UNK
     Route: 065
     Dates: start: 20170313
  5. METOPROLOL SUCCINATE. [Suspect]
     Active Substance: METOPROLOL SUCCINATE
     Indication: BLOOD PRESSURE MEASUREMENT
     Dosage: 75 MG, BID
     Route: 065
     Dates: start: 20170313
  6. ADCIRCA [Concomitant]
     Active Substance: TADALAFIL
  7. WARFARIN [Concomitant]
     Active Substance: WARFARIN

REACTIONS (23)
  - Dyspnoea [Recovered/Resolved]
  - Chest discomfort [Unknown]
  - Tachycardia [Recovered/Resolved]
  - Oedema peripheral [Unknown]
  - Syncope [Recovered/Resolved]
  - Dizziness [Unknown]
  - Oxygen consumption increased [Unknown]
  - Weight increased [Unknown]
  - Jugular vein distension [Unknown]
  - Brain natriuretic peptide increased [Unknown]
  - Abdominal pain [Not Recovered/Not Resolved]
  - Constipation [Not Recovered/Not Resolved]
  - Gastrooesophageal reflux disease [Unknown]
  - Pulmonary arterial hypertension [Unknown]
  - Tracheobronchitis [Recovered/Resolved]
  - Cough [Unknown]
  - Hypotension [Recovered/Resolved]
  - Dysgeusia [Unknown]
  - Pain [Unknown]
  - Fluid retention [Unknown]
  - Hypoxia [Recovered/Resolved]
  - Productive cough [Recovered/Resolved]
  - Drug dose omission [Unknown]

NARRATIVE: CASE EVENT DATE: 201603
